FAERS Safety Report 16322786 (Version 6)
Quarter: 2020Q2

REPORT INFORMATION
  Report Type: Report from Study
  Country: None (occurrence: CO)
  Receive Date: 20190516
  Receipt Date: 20200430
  Transmission Date: 20200713
  Serious: Yes (Other)
  Sender: FDA-Public Use
  Company Number: CO-ABBVIE-19K-036-2747728-00

PATIENT
  Age: 74 Year
  Sex: Female
  Weight: 57 kg

DRUGS (2)
  1. HUMIRA [Suspect]
     Active Substance: ADALIMUMAB
     Indication: PSORIASIS
     Route: 058
     Dates: start: 20160510
  2. HUMIRA [Suspect]
     Active Substance: ADALIMUMAB
     Route: 058
     Dates: end: 20190128

REACTIONS (10)
  - Nail discolouration [Unknown]
  - Onychoclasis [Unknown]
  - Furuncle [Unknown]
  - Psoriasis [Not Recovered/Not Resolved]
  - Hypersensitivity [Unknown]
  - Skin plaque [Unknown]
  - Onychomycosis [Unknown]
  - Joint dislocation [Recovering/Resolving]
  - Urticaria [Not Recovered/Not Resolved]
  - Finger deformity [Recovering/Resolving]

NARRATIVE: CASE EVENT DATE: 201812
